FAERS Safety Report 9187525 (Version 2)
Quarter: 2013Q3

REPORT INFORMATION
  Report Type: Spontaneous
  Country: US (occurrence: US)
  Receive Date: 20130325
  Receipt Date: 20130829
  Transmission Date: 20140515
  Serious: Yes (Other)
  Sender: FDA-Public Use
  Company Number: US-PFIZER INC-2013093116

PATIENT
  Age: 47 Year
  Sex: Female

DRUGS (3)
  1. CHANTIX [Suspect]
     Dosage: UNK
     Dates: start: 20060201, end: 20070801
  2. CHANTIX [Suspect]
     Dosage: 1 MG, CONTINUING MONTH PACK
     Dates: start: 20070110
  3. CHANTIX [Suspect]
     Dosage: STARTING MONTH PACK
     Dates: start: 20080130

REACTIONS (1)
  - Suicide attempt [Unknown]
